FAERS Safety Report 22319523 (Version 3)
Quarter: 2023Q4

REPORT INFORMATION
  Report Type: Report from Study
  Country: DE (occurrence: DE)
  Receive Date: 20230515
  Receipt Date: 20231116
  Transmission Date: 20240109
  Serious: Yes (Hospitalization, Other)
  Sender: FDA-Public Use
  Company Number: DE-002147023-NVSC2023DE068339

PATIENT
  Sex: Female

DRUGS (4)
  1. METHOTREXATE [Suspect]
     Active Substance: METHOTREXATE
     Indication: Product used for unknown indication
     Dosage: 50 MILLIGRAM
     Route: 065
  2. ETANERCEPT [Suspect]
     Active Substance: ETANERCEPT
     Indication: Product used for unknown indication
     Dosage: 50 MILLIGRAM, QW (EVERY 7 DAYS)
     Route: 065
     Dates: start: 20230905
  3. ERELZI [Suspect]
     Active Substance: ETANERCEPT-SZZS
     Indication: Product used for unknown indication
     Dosage: 50 MILLIGRAM, QW, 50 MG, EVERY 7 DAYS
     Route: 065
     Dates: start: 20230828
  4. METHOTREXATE SODIUM [Concomitant]
     Active Substance: METHOTREXATE SODIUM
     Indication: Product used for unknown indication
     Dosage: 15 MILLIGRAM, QW
     Route: 065

REACTIONS (7)
  - Circulatory collapse [Recovered/Resolved]
  - Anal fissure haemorrhage [Recovered/Resolved]
  - Spinal osteoarthritis [Not Recovered/Not Resolved]
  - Pulmonary valve incompetence [Unknown]
  - Spinal pain [Not Recovered/Not Resolved]
  - Dizziness [Recovered/Resolved]
  - COVID-19 [Unknown]
